FAERS Safety Report 23610212 (Version 1)
Quarter: 2024Q1

REPORT INFORMATION
  Report Type: Spontaneous
  Country: DK (occurrence: DK)
  Receive Date: 20240308
  Receipt Date: 20240308
  Transmission Date: 20240409
  Serious: Yes (Other)
  Sender: FDA-Public Use
  Company Number: DK-SUN PHARMACEUTICAL INDUSTRIES LTD-2024RR-435342

PATIENT
  Age: 39 Year
  Sex: Female

DRUGS (14)
  1. LENALIDOMIDE [Suspect]
     Active Substance: LENALIDOMIDE
     Indication: Plasma cell myeloma
     Dosage: 20 SERIES
     Route: 065
     Dates: start: 2016
  2. LENALIDOMIDE [Suspect]
     Active Substance: LENALIDOMIDE
     Dosage: EIGHT SERIES
     Route: 065
     Dates: start: 2018
  3. BORTEZOMIB [Suspect]
     Active Substance: BORTEZOMIB
     Indication: Plasma cell myeloma
     Dosage: ONLY ONE TREATMENT
     Route: 065
     Dates: start: 2018
  4. BORTEZOMIB [Suspect]
     Active Substance: BORTEZOMIB
     Dosage: TWO SERIES
     Dates: start: 2021
  5. DEXAMETHASONE [Suspect]
     Active Substance: DEXAMETHASONE
     Indication: Plasma cell myeloma
     Dosage: 20 SERIES
     Route: 065
     Dates: start: 2016
  6. DEXAMETHASONE [Suspect]
     Active Substance: DEXAMETHASONE
     Dosage: ONLY ONE TREATMENT
     Route: 065
     Dates: start: 2018
  7. DEXAMETHASONE [Suspect]
     Active Substance: DEXAMETHASONE
     Dosage: EIGHT SERIES
     Route: 065
     Dates: start: 2018
  8. DEXAMETHASONE [Suspect]
     Active Substance: DEXAMETHASONE
     Dosage: 21 SERIE
     Route: 065
     Dates: start: 2019, end: 2021
  9. DEXAMETHASONE [Suspect]
     Active Substance: DEXAMETHASONE
     Dosage: TWO SERIES
     Route: 065
     Dates: start: 2021
  10. DARATUMUMAB [Suspect]
     Active Substance: DARATUMUMAB
     Indication: Plasma cell myeloma
     Dosage: ONLY ONE TREATMENT
     Route: 065
     Dates: start: 2018
  11. DARATUMUMAB [Suspect]
     Active Substance: DARATUMUMAB
     Dosage: TWO SERIES
     Route: 065
     Dates: start: 2021
  12. CARFILZOMIB [Suspect]
     Active Substance: CARFILZOMIB
     Indication: Plasma cell myeloma
     Dosage: EIGHT SERIES
     Route: 065
     Dates: start: 2018
  13. POMALIDOMIDE [Suspect]
     Active Substance: POMALIDOMIDE
     Indication: Plasma cell myeloma
     Dosage: 21 SERIES
     Route: 065
     Dates: start: 2019, end: 2021
  14. BENDAMUSTINE [Suspect]
     Active Substance: BENDAMUSTINE
     Indication: Product used for unknown indication
     Dosage: TWO SERIES
     Dates: start: 2021, end: 2021

REACTIONS (3)
  - Disease progression [Unknown]
  - Condition aggravated [Unknown]
  - Progressive multifocal leukoencephalopathy [Unknown]

NARRATIVE: CASE EVENT DATE: 20180101
